FAERS Safety Report 10355158 (Version 1)
Quarter: 2014Q3

REPORT INFORMATION
  Report Type: Report from Study
  Country: US (occurrence: US)
  Receive Date: 20140731
  Receipt Date: 20140731
  Transmission Date: 20150326
  Serious: Yes (Death, Hospitalization)
  Sender: FDA-Public Use
  Company Number: PHEH2014US015219

PATIENT
  Age: 69 Year
  Sex: Male
  Weight: 110.9 kg

DRUGS (15)
  1. AFINITOR [Suspect]
     Active Substance: EVEROLIMUS
     Indication: METASTATIC RENAL CELL CARCINOMA
     Dosage: 10 MG, DAILY
     Route: 048
     Dates: start: 20140303, end: 20140513
  2. MORPHINE SULPHATE [Concomitant]
     Active Substance: MORPHINE SULFATE
     Indication: PAIN
     Dosage: 15 MG, Q4H PRN
     Route: 048
     Dates: start: 20140123, end: 20140513
  3. NIASPAN [Concomitant]
     Active Substance: NIACIN
     Dosage: 1000 MG, BID
     Route: 048
  4. DIGOXIN. [Concomitant]
     Active Substance: DIGOXIN
     Dosage: 0.125 MG, DAILY
     Route: 048
  5. ZOFRAN [Concomitant]
     Active Substance: ONDANSETRON HYDROCHLORIDE
     Dosage: 8 MG, Q8H PRN
  6. LASIX [Concomitant]
     Active Substance: FUROSEMIDE
     Dosage: 20 MG, DAILY
     Route: 048
  7. COMPAZINE [Concomitant]
     Active Substance: PROCHLORPERAZINE MALEATE
     Indication: NAUSEA
     Dosage: 10 MG, Q6H PRN
     Route: 048
     Dates: start: 20131231
  8. FISH OIL [Concomitant]
     Active Substance: FISH OIL
     Dosage: 100 MG, BID
     Route: 048
  9. TERAZOSIN [Concomitant]
     Active Substance: TERAZOSIN\TERAZOSIN HYDROCHLORIDE
     Dosage: 10 MG, DAILY
     Route: 048
  10. GARLIC. [Concomitant]
     Active Substance: GARLIC
     Dosage: 1000 MG, DAILY
     Route: 048
  11. APO-FOLIC ACID [Concomitant]
     Active Substance: FOLIC ACID
     Dosage: 1000 MG, DAILY
     Route: 048
  12. ADVAIR DISKUS [Concomitant]
     Active Substance: FLUTICASONE PROPIONATE\SALMETEROL XINAFOATE
     Dosage: 250-500 UG/ DOSE PUFF  BID
  13. FLONASE [Concomitant]
     Active Substance: FLUTICASONE PROPIONATE
     Dosage: 50 UG (1-2 SPRAYS) EACH NOSTRIL PRN
  14. ASA [Concomitant]
     Active Substance: ASPIRIN
     Dosage: 325 MG, DAILY
     Route: 048
  15. METOPROLOL [Concomitant]
     Active Substance: METOPROLOL
     Dosage: 50 MG, BID
     Route: 048

REACTIONS (5)
  - Renal failure [Recovered/Resolved]
  - Death [Fatal]
  - Asthenia [Unknown]
  - Hepatitis [Recovered/Resolved]
  - Metastatic renal cell carcinoma [Not Recovered/Not Resolved]

NARRATIVE: CASE EVENT DATE: 20140513
